FAERS Safety Report 21664664 (Version 1)
Quarter: 2022Q4

REPORT INFORMATION
  Report Type: Report from Study
  Country: CN (occurrence: CN)
  Receive Date: 20221130
  Receipt Date: 20221130
  Transmission Date: 20230113
  Serious: Yes (Hospitalization, Other)
  Sender: FDA-Public Use
  Company Number: CN-BRISTOL-MYERS SQUIBB COMPANY-2022-145245

PATIENT
  Age: 45 Year
  Sex: Male
  Weight: 74.3 kg

DRUGS (14)
  1. AZACITIDINE [Suspect]
     Active Substance: AZACITIDINE
     Indication: Acute myeloid leukaemia
     Route: 058
     Dates: start: 20220831, end: 20220929
  2. VENETOCLAX [Suspect]
     Active Substance: VENETOCLAX
     Indication: Acute myeloid leukaemia
     Route: 048
     Dates: start: 20220831, end: 20221018
  3. MAGNESIUM [MAGNESIUM OXIDE] [Concomitant]
     Indication: Alanine aminotransferase increased
     Route: 065
     Dates: start: 20220827
  4. SODIUM BICARBONATE;WATER FOR INJECTION [Concomitant]
     Indication: Prophylaxis
     Route: 065
     Dates: start: 20220819
  5. CARBAZOCHROME SODIUM SULFONATE [Concomitant]
     Active Substance: CARBAZOCHROME SODIUM SULFONATE
     Indication: Haemorrhage prophylaxis
     Route: 065
     Dates: start: 20220819
  6. PIPERACILLIN SODIUM\SULBACTAM SODIUM [Concomitant]
     Active Substance: PIPERACILLIN SODIUM\SULBACTAM SODIUM
     Indication: Pneumonia
     Route: 065
     Dates: start: 20220819
  7. VORICONAZOLE [Concomitant]
     Active Substance: VORICONAZOLE
     Indication: Pneumonia
     Dosage: 2/DAYS
     Route: 065
     Dates: start: 20220820
  8. alpha-Ketoacid [Concomitant]
     Indication: Renal disorder prophylaxis
     Dosage: 3/DAYS
     Route: 065
     Dates: start: 20220822
  9. CALCIUM GLUCONATE [Concomitant]
     Active Substance: CALCIUM GLUCONATE
     Indication: Prophylaxis
     Route: 065
  10. AZITHROMYCIN [Concomitant]
     Active Substance: AZITHROMYCIN
     Indication: Alanine aminotransferase increased
     Dosage: 5/DAY
     Route: 065
     Dates: start: 20220827
  11. ONDANSETRON HYDROCHLORIDE [Concomitant]
     Active Substance: ONDANSETRON HYDROCHLORIDE
     Indication: Prophylaxis of nausea and vomiting
     Dates: start: 20220831, end: 20220919
  12. CEFTRIAXONE SODIUM\TAZOBACTAM SODIUM [Concomitant]
     Active Substance: CEFTRIAXONE SODIUM\TAZOBACTAM SODIUM
     Indication: Pneumonia
     Route: 065
     Dates: start: 20220819
  13. BICYCLOL [Concomitant]
     Active Substance: BICYCLOL
     Indication: Alanine aminotransferase increased
     Dosage: 5/DAY
     Route: 065
     Dates: start: 20220827
  14. BICYCLOL [Concomitant]
     Active Substance: BICYCLOL
     Indication: Aspartate aminotransferase increased

REACTIONS (7)
  - Headache [Recovered/Resolved with Sequelae]
  - Cholelithiasis [Not Recovered/Not Resolved]
  - Gallbladder obstruction [Not Recovered/Not Resolved]
  - Cholecystitis [Not Recovered/Not Resolved]
  - Vomiting [Unknown]
  - Dizziness [Unknown]
  - Extensor plantar response [Unknown]

NARRATIVE: CASE EVENT DATE: 20220929
